FAERS Safety Report 12561762 (Version 2)
Quarter: 2016Q3

REPORT INFORMATION
  Report Type: Spontaneous
  Country: US (occurrence: US)
  Receive Date: 20160715
  Receipt Date: 20160729
  Transmission Date: 20161109
  Serious: Yes (Other)
  Sender: FDA-Public Use
  Company Number: US-PFIZER INC-2016338858

PATIENT
  Age: 60 Year
  Sex: Male
  Weight: 117.91 kg

DRUGS (3)
  1. GABAPENTIN. [Concomitant]
     Active Substance: GABAPENTIN
     Dosage: 300 MG, 2X/DAY
  2. NAPROXEN. [Concomitant]
     Active Substance: NAPROXEN
     Indication: DIABETIC NEUROPATHY
     Dosage: 500 MG, 2X/DAY
  3. LYRICA [Suspect]
     Active Substance: PREGABALIN
     Indication: DIABETIC NEUROPATHY
     Dosage: UNK, 2X/DAY
     Route: 048

REACTIONS (2)
  - Diabetic ulcer [Not Recovered/Not Resolved]
  - Pain [Unknown]
